FAERS Safety Report 8522708-9 (Version None)
Quarter: 2012Q3

REPORT INFORMATION
  Report Type: 
  Country: None (occurrence: None)
  Receive Date: 20120719
  Receipt Date: 20120309
  Transmission Date: 20120928
  Serious: Yes (Hospitalization)
  Sender: FDA-Public Use
  Company Number: JP-GLAXOSMITHKLINE-B0788493A

PATIENT
  Sex: Female
  Weight: 62 kg

DRUGS (14)
  1. ALFAROL [Concomitant]
     Indication: JOINT ARTHROPLASTY
     Dosage: 1MCG PER DAY
     Route: 048
     Dates: start: 20111014
  2. FAMOTIDINE [Concomitant]
     Indication: JOINT ARTHROPLASTY
     Dosage: 20MG PER DAY
     Route: 048
     Dates: start: 20111014
  3. ASPIRIN [Concomitant]
     Indication: JOINT ARTHROPLASTY
     Dosage: 3G PER DAY
     Route: 048
     Dates: start: 20111014
  4. XELODA [Suspect]
     Dosage: 3600MG PER DAY
     Route: 048
     Dates: start: 20111019, end: 20120119
  5. PYDOXAL [Concomitant]
     Indication: NEUROPATHY PERIPHERAL
     Route: 048
     Dates: start: 20111017, end: 20120203
  6. LOCOID [Concomitant]
     Indication: JOINT ARTHROPLASTY
     Route: 061
     Dates: start: 20111014
  7. TYKERB [Suspect]
     Indication: BREAST CANCER
     Dosage: 1250MG PER DAY
     Route: 048
     Dates: start: 20111019, end: 20120119
  8. URSO 250 [Concomitant]
     Indication: JOINT ARTHROPLASTY
     Dosage: 300MG PER DAY
     Route: 048
     Dates: start: 20111014
  9. MUCOSOLVAN [Concomitant]
     Indication: JOINT ARTHROPLASTY
     Dosage: 45MG PER DAY
     Route: 048
     Dates: start: 20111014
  10. INFLUENZA HA VACCINE [Concomitant]
     Indication: ANTIVIRAL PROPHYLAXIS
     Dates: start: 20111111, end: 20111111
  11. LIPITOR [Concomitant]
     Indication: JOINT ARTHROPLASTY
     Dosage: 10MG PER DAY
     Route: 048
     Dates: start: 20111014
  12. AMOBAN [Concomitant]
     Indication: INSOMNIA
     Route: 048
     Dates: start: 20111014
  13. UNKNOWN [Concomitant]
     Indication: JOINT ARTHROPLASTY
     Dosage: 2IUAX PER DAY
     Route: 062
     Dates: start: 20111014
  14. UNKNOWN DRUG [Concomitant]
     Indication: PALMAR-PLANTAR ERYTHRODYSAESTHESIA SYNDROME
     Route: 065
     Dates: start: 20111017, end: 20120104

REACTIONS (4)
  - DIZZINESS [None]
  - PALMAR-PLANTAR ERYTHRODYSAESTHESIA SYNDROME [None]
  - DECREASED APPETITE [None]
  - HEPATIC FUNCTION ABNORMAL [None]
